FAERS Safety Report 11550051 (Version 1)
Quarter: 2015Q3

REPORT INFORMATION
  Report Type: Spontaneous
  Country: US (occurrence: US)
  Receive Date: 20150903
  Receipt Date: 20150903
  Transmission Date: 20151125
  Serious: No
  Sender: FDA-Public Use
  Company Number: US-ELI_LILLY_AND_COMPANY-US201301005729

PATIENT
  Sex: Male

DRUGS (2)
  1. LANTUS [Concomitant]
     Active Substance: INSULIN GLARGINE
  2. HUMALOG MIX75/25 [Suspect]
     Active Substance: INSULIN LISPRO
     Indication: TYPE 2 DIABETES MELLITUS
     Dosage: UNK
     Dates: start: 2000

REACTIONS (6)
  - Blood glucose increased [Recovered/Resolved]
  - Incorrect product storage [Unknown]
  - Nervousness [Unknown]
  - Gait disturbance [Unknown]
  - Nerve compression [Unknown]
  - Paraesthesia [Unknown]
